FAERS Safety Report 11675598 (Version 1)
Quarter: 2015Q4

REPORT INFORMATION
  Report Type: Spontaneous
  Country: FR (occurrence: FR)
  Receive Date: 20151028
  Receipt Date: 20151028
  Transmission Date: 20160304
  Serious: Yes (Hospitalization)
  Sender: FDA-Public Use
  Company Number: FR-PFIZER INC-2015359097

PATIENT
  Age: 76 Year
  Sex: Male

DRUGS (14)
  1. ALPRESS [Suspect]
     Active Substance: PRAZOSIN
     Dosage: UNK
     Route: 048
     Dates: start: 20141216, end: 20150305
  2. FLUDEX /00340101/ [Suspect]
     Active Substance: INDAPAMIDE
     Dosage: UNK
     Route: 048
     Dates: end: 20150305
  3. AMLOR [Concomitant]
     Active Substance: AMLODIPINE BESYLATE
     Dosage: UNK
     Dates: end: 20150305
  4. ELISOR [Suspect]
     Active Substance: PRAVASTATIN SODIUM
     Dosage: UNK
     Route: 048
     Dates: start: 20141216, end: 20150320
  5. ALLOPURINOL. [Suspect]
     Active Substance: ALLOPURINOL
     Dosage: UNK
     Route: 048
     Dates: start: 20141216, end: 20150108
  6. PLAVIX [Concomitant]
     Active Substance: CLOPIDOGREL BISULFATE
  7. GLUCOPHAGE [Concomitant]
     Active Substance: METFORMIN HYDROCHLORIDE
  8. CIFLOX /00697201/ [Suspect]
     Active Substance: CIPROFLOXACIN
     Indication: URINARY TRACT INFECTION
     Dosage: UNK
     Route: 048
     Dates: start: 20141220, end: 20141225
  9. ELIGARD [Concomitant]
     Active Substance: LEUPROLIDE ACETATE
     Dosage: UNK
     Dates: start: 201501
  10. DECAPEPTYL [Suspect]
     Active Substance: TRIPTORELIN ACETATE
     Indication: PROSTATE CANCER
     Dosage: 1 DF, SINGLE
     Route: 030
     Dates: start: 201410, end: 201410
  11. TEMERIT [Concomitant]
     Active Substance: NEBIVOLOL
  12. PARIET [Concomitant]
     Active Substance: RABEPRAZOLE SODIUM
  13. DAFALGAN [Concomitant]
     Active Substance: ACETAMINOPHEN
  14. HYPERIUM [Concomitant]
     Active Substance: RILMENIDINE PHOSPHATE

REACTIONS (2)
  - Rash pruritic [Recovering/Resolving]
  - Urinary tract infection [Unknown]

NARRATIVE: CASE EVENT DATE: 201412
